FAERS Safety Report 24311532 (Version 1)
Quarter: 2024Q3

REPORT INFORMATION
  Report Type: Spontaneous
  Country: FR (occurrence: FR)
  Receive Date: 20240912
  Receipt Date: 20240912
  Transmission Date: 20241017
  Serious: Yes (Life-Threatening, Other)
  Sender: UCB
  Company Number: None

PATIENT
  Age: 53 Year
  Sex: Male
  Weight: 60 kg

DRUGS (4)
  1. BRIVIACT [Suspect]
     Active Substance: BRIVARACETAM
     Indication: Poisoning deliberate
     Dosage: 2.1 GRAM ONE TIME DOSE (IN TOTAL)
     Route: 048
     Dates: start: 20240804, end: 20240804
  2. BRIVIACT [Suspect]
     Active Substance: BRIVARACETAM
     Indication: Off label use
  3. TEGRETOL [Suspect]
     Active Substance: CARBAMAZEPINE
     Indication: Poisoning deliberate
     Dosage: 11.2 GRAM ONE TIME DOSE
     Route: 048
     Dates: start: 20240804, end: 20240804
  4. CAFFEINE\PHENOBARBITAL [Suspect]
     Active Substance: CAFFEINE\PHENOBARBITAL
     Indication: Poisoning deliberate
     Dosage: 1.05 GRAM ONE TIME DOSE
     Route: 048
     Dates: start: 20240804, end: 20240804

REACTIONS (9)
  - Altered state of consciousness [Recovered/Resolved]
  - Hypoxia [Recovered/Resolved]
  - Epilepsy [Recovered/Resolved]
  - Musculoskeletal stiffness [Recovered/Resolved]
  - Vomiting [Recovered/Resolved]
  - Agitation [Recovered/Resolved]
  - Haemodynamic instability [Recovered/Resolved]
  - Off label use [Unknown]
  - Overdose [Unknown]

NARRATIVE: CASE EVENT DATE: 20240804
